FAERS Safety Report 13661726 (Version 3)
Quarter: 2017Q3

REPORT INFORMATION
  Report Type: Spontaneous
  Country: KR (occurrence: KR)
  Receive Date: 20170616
  Receipt Date: 20170825
  Transmission Date: 20171127
  Serious: Yes (Other)
  Sender: FDA-Public Use
  Company Number: KR-009507513-1702KOR001599

PATIENT
  Age: 52 Year
  Sex: Female
  Weight: 63.2 kg

DRUGS (28)
  1. AD MYCIN VIAL [Concomitant]
     Dosage: STRENGTH: 5MG/25ML; 100 MG, ONCE, CYCLE 3
     Route: 042
     Dates: start: 20160607, end: 20160607
  2. PLAKON [Concomitant]
     Dosage: STRENGTH: 3MG/2ML; 1.5 MG, ONCE
     Route: 030
     Dates: start: 20160517, end: 20160517
  3. ENDOXAN [Concomitant]
     Active Substance: CYCLOPHOSPHAMIDE
     Dosage: 1010 MG, ONCE, CYCLE 4
     Route: 042
     Dates: start: 20160628, end: 20160628
  4. EMEND (FOSAPREPITANT DIMEGLUMINE) [Suspect]
     Active Substance: FOSAPREPITANT DIMEGLUMINE
     Dosage: 150 MG, ONCE
     Route: 042
     Dates: start: 20160628, end: 20160628
  5. ALOXI [Concomitant]
     Active Substance: PALONOSETRON HYDROCHLORIDE
     Dosage: 0.25 MG, ONCE
     Route: 042
     Dates: start: 20160607, end: 20160607
  6. MACPERAN [Concomitant]
     Active Substance: METOCLOPRAMIDE HYDROCHLORIDE
     Dosage: 10 MG, ONCE
     Route: 042
     Dates: start: 20160517, end: 20160517
  7. EMEND (FOSAPREPITANT DIMEGLUMINE) [Suspect]
     Active Substance: FOSAPREPITANT DIMEGLUMINE
     Dosage: 150 MG, ONCE
     Route: 042
     Dates: start: 20160607, end: 20160607
  8. EMEND (FOSAPREPITANT DIMEGLUMINE) [Suspect]
     Active Substance: FOSAPREPITANT DIMEGLUMINE
     Indication: PROPHYLAXIS OF NAUSEA AND VOMITING
     Dosage: 150 MG, ONCE
     Route: 042
     Dates: start: 20160427, end: 20160427
  9. AD MYCIN VIAL [Concomitant]
     Dosage: STRENGTH: 5MG/25ML; 100 MG, ONCE, CYCLE 4
     Route: 042
     Dates: start: 20160628, end: 20160628
  10. ENDOXAN [Concomitant]
     Active Substance: CYCLOPHOSPHAMIDE
     Indication: BREAST CANCER
     Dosage: 1008 MG ONCE, CYCLE 1
     Route: 042
     Dates: start: 20160427, end: 20160427
  11. DEXAMETHASONE SODIUM PHOSPHATE. [Concomitant]
     Active Substance: DEXAMETHASONE SODIUM PHOSPHATE
     Indication: PROPHYLAXIS OF NAUSEA AND VOMITING
     Dosage: STRENGHT: 5MG/ML; 5 MG, ONCE
     Route: 042
     Dates: start: 20160427, end: 20160427
  12. MACPERAN [Concomitant]
     Active Substance: METOCLOPRAMIDE HYDROCHLORIDE
     Indication: PROPHYLAXIS
     Dosage: 10 MG, ONCE
     Route: 042
     Dates: start: 20160427, end: 20160427
  13. PLAKON [Concomitant]
     Indication: ALLERGY PROPHYLAXIS
     Dosage: STRENGTH: 3MG/2ML; 1.5 MG, ONCE
     Route: 030
     Dates: start: 20160427, end: 20160427
  14. EMEND (FOSAPREPITANT DIMEGLUMINE) [Suspect]
     Active Substance: FOSAPREPITANT DIMEGLUMINE
     Dosage: 150 MG, ONCE
     Route: 042
     Dates: start: 20160517, end: 20160517
  15. AD MYCIN VIAL [Concomitant]
     Dosage: STRENGTH: 5MG/25ML; 100 MG, ONCE, CYCLE 2
     Route: 042
     Dates: start: 20160517, end: 20160517
  16. ENDOXAN [Concomitant]
     Active Substance: CYCLOPHOSPHAMIDE
     Dosage: 1010 MG, ONCE, CYCLE 2
     Route: 042
     Dates: start: 20160517, end: 20160517
  17. ALOXI [Concomitant]
     Active Substance: PALONOSETRON HYDROCHLORIDE
     Dosage: 0.25 MG, ONCE
     Route: 042
     Dates: start: 20160628, end: 20160628
  18. AD MYCIN VIAL [Concomitant]
     Indication: BREAST CANCER
     Dosage: STRENGTH: 5MG/25ML; 100 MG, ONCE, CYCLE 1 STRENGHT: 50MG/25ML
     Route: 042
     Dates: start: 20160427, end: 20160427
  19. ENDOXAN [Concomitant]
     Active Substance: CYCLOPHOSPHAMIDE
     Dosage: 1010 MG, ONCE, CYCLE 3
     Route: 042
     Dates: start: 20160607, end: 20160607
  20. DEXAMETHASONE SODIUM PHOSPHATE. [Concomitant]
     Active Substance: DEXAMETHASONE SODIUM PHOSPHATE
     Dosage: STRENGHT: 5MG/ML; 5 MG, ONCE
     Route: 042
     Dates: start: 20160517, end: 20160517
  21. DEXAMETHASONE SODIUM PHOSPHATE. [Concomitant]
     Active Substance: DEXAMETHASONE SODIUM PHOSPHATE
     Dosage: STRENGHT: 5MG/ML; 5 MG, ONCE
     Route: 042
     Dates: start: 20160607, end: 20160607
  22. DEXAMETHASONE SODIUM PHOSPHATE. [Concomitant]
     Active Substance: DEXAMETHASONE SODIUM PHOSPHATE
     Dosage: STRENGHT: 5MG/ML; 5 MG, ONCE
     Route: 042
     Dates: start: 20160628, end: 20160628
  23. MACPERAN [Concomitant]
     Active Substance: METOCLOPRAMIDE HYDROCHLORIDE
     Dosage: 10 MG, ONCE
     Route: 042
     Dates: start: 20160607, end: 20160607
  24. MACPERAN [Concomitant]
     Active Substance: METOCLOPRAMIDE HYDROCHLORIDE
     Dosage: 10 ML, ONCE
     Route: 042
     Dates: start: 20160628, end: 20160628
  25. PLAKON [Concomitant]
     Dosage: STRENGTH: 3MG/2ML; 1.5 MG, ONCE
     Route: 030
     Dates: start: 20160607, end: 20160607
  26. ALOXI [Concomitant]
     Active Substance: PALONOSETRON HYDROCHLORIDE
     Indication: PROPHYLAXIS OF NAUSEA AND VOMITING
     Dosage: 0.25 MG, ONCE
     Route: 042
     Dates: start: 20160427, end: 20160427
  27. ALOXI [Concomitant]
     Active Substance: PALONOSETRON HYDROCHLORIDE
     Dosage: 0.25 MG, ONCE
     Route: 042
     Dates: start: 20160517, end: 20160517
  28. PLAKON [Concomitant]
     Dosage: STRENGTH: 3MG/2ML; 1.5 MG, ONCE
     Route: 030
     Dates: start: 20160628, end: 20160628

REACTIONS (6)
  - Diarrhoea [Recovered/Resolved]
  - Oropharyngeal pain [Recovered/Resolved]
  - Haemorrhoids [Recovered/Resolved]
  - Headache [Recovered/Resolved]
  - Nausea [Recovered/Resolved]
  - Neutrophil count decreased [Recovered/Resolved]

NARRATIVE: CASE EVENT DATE: 20160504
